FAERS Safety Report 9208029 (Version 2)
Quarter: 2013Q2

REPORT INFORMATION
  Report Type: Report from Study
  Country: US (occurrence: US)
  Receive Date: 20130403
  Receipt Date: 20130415
  Transmission Date: 20140414
  Serious: Yes (Hospitalization)
  Sender: FDA-Public Use
  Company Number: US-ACTELION-A-US2012-64056

PATIENT
  Age: 7 Month
  Sex: Male

DRUGS (4)
  1. TRACLEER [Suspect]
     Indication: PULMONARY ARTERIAL HYPERTENSION
     Dosage: UNK
     Route: 048
  2. DIGOXIN [Concomitant]
  3. ASPIRIN [Concomitant]
     Dosage: 81 MG, UNK
  4. SILDENAFIL [Concomitant]

REACTIONS (6)
  - Rotavirus infection [Recovering/Resolving]
  - Pulse pressure increased [Recovering/Resolving]
  - Heart rate increased [Recovering/Resolving]
  - Upper respiratory tract infection [Recovered/Resolved]
  - Respiratory syncytial virus infection [Recovered/Resolved]
  - Respiratory distress [Recovered/Resolved with Sequelae]
